FAERS Safety Report 7394253-8 (Version None)
Quarter: 2011Q2

REPORT INFORMATION
  Report Type: 
  Country: None (occurrence: None)
  Receive Date: 20110405
  Receipt Date: 20110329
  Transmission Date: 20111010
  Serious: Yes (Other)
  Sender: FDA-Public Use
  Company Number: JP-BAYER-201010917BYL

PATIENT
  Sex: Male
  Weight: 43.9 kg

DRUGS (1)
  1. NEXAVAR [Suspect]
     Indication: HEPATIC NEOPLASM MALIGNANT
     Dosage: 400 MG, BID
     Route: 048
     Dates: start: 20100202, end: 20100210

REACTIONS (5)
  - DECREASED APPETITE [None]
  - HEPATIC FAILURE [None]
  - JAUNDICE [None]
  - PROTHROMBIN LEVEL INCREASED [None]
  - FATIGUE [None]
